FAERS Safety Report 6925148-9 (Version None)
Quarter: 2010Q3

REPORT INFORMATION
  Report Type: 
  Country: None (occurrence: None)
  Receive Date: 20100811
  Receipt Date: 20100727
  Transmission Date: 20110219
  Serious: Yes (Other)
  Sender: FDA-Public Use
  Company Number: CIP10001768

PATIENT
  Age: 82 Year
  Sex: Female

DRUGS (11)
  1. RISEDRONATE SODIUM [Suspect]
     Indication: OSTEOPOROSIS
     Dosage: ORAL
     Route: 048
  2. OXYCODONE HCL [Concomitant]
  3. CREON 10000 (PANCREATIN) [Concomitant]
  4. LEVOTHYROXINE SODIUM [Concomitant]
  5. OMEPRAZOLE [Concomitant]
  6. SIMVASTATIN [Concomitant]
  7. ACETAMINOPHEN [Concomitant]
  8. LAXOBERAL (SODIUM PICOSULFATE) [Concomitant]
  9. ACETYLSALICYLIC ACID SRT [Concomitant]
  10. ISOSORBID /00586303/ (ISOSORBID MONONITRATE) [Concomitant]
  11. MOVICOL /01053601/ (MACROGOL, POTASSIUM CHLORIDE, SODIUM BICARBONATE, [Concomitant]

REACTIONS (1)
  - OSTEONECROSIS [None]
